FAERS Safety Report 6493526-0 (Version None)
Quarter: 2009Q4

REPORT INFORMATION
  Report Type: 
  Country: None (occurrence: None)
  Receive Date: 20091211
  Receipt Date: 20091211
  Transmission Date: 20100525
  Serious: Yes (Death)
  Sender: FDA-Public Use
  Company Number: None

PATIENT
  Age: 83 Year
  Sex: Female
  Weight: 53.5244 kg

DRUGS (1)
  1. RECLAST [Suspect]
     Indication: OSTEOPOROSIS POSTMENOPAUSAL
     Dosage: 5 MG ONE TIME DOSE IV BOLUS
     Route: 040
     Dates: start: 20090101, end: 20090101

REACTIONS (12)
  - BACK PAIN [None]
  - CHRONIC OBSTRUCTIVE PULMONARY DISEASE [None]
  - COAGULOPATHY [None]
  - DEHYDRATION [None]
  - DISORIENTATION [None]
  - FLUID INTAKE REDUCED [None]
  - HYPERKALAEMIA [None]
  - HYPERMAGNESAEMIA [None]
  - HYPOPHAGIA [None]
  - HYPOVOLAEMIA [None]
  - LEUKOCYTOSIS [None]
  - RENAL FAILURE ACUTE [None]
